FAERS Safety Report 17622003 (Version 1)
Quarter: 2020Q2

REPORT INFORMATION
  Report Type: Spontaneous
  Country: US (occurrence: US)
  Receive Date: 20200403
  Receipt Date: 20200403
  Transmission Date: 20200713
  Serious: Yes (Other)
  Sender: FDA-Public Use
  Company Number: None

PATIENT
  Age: 57 Year
  Sex: Female
  Weight: 101.25 kg

DRUGS (11)
  1. CELEBREX [Concomitant]
     Active Substance: CELECOXIB
  2. STOOL SOFTENER (DOCUSATE) [Concomitant]
     Active Substance: DOCUSATE
  3. DULERA [Suspect]
     Active Substance: FORMOTEROL FUMARATE DIHYDRATE\MOMETASONE FUROATE
     Indication: ASTHMA
     Dosage: ?          QUANTITY:1 PUFF(S);?
     Route: 055
     Dates: start: 20200325, end: 20200403
  4. LORSATAN [Concomitant]
  5. LORATADINE. [Concomitant]
     Active Substance: LORATADINE
  6. OMEPRAZOLE. [Concomitant]
     Active Substance: OMEPRAZOLE
  7. PREDNISONE. [Concomitant]
     Active Substance: PREDNISONE
  8. PREDNISONE. [Suspect]
     Active Substance: PREDNISONE
  9. HYDROCHLOROTHIAZIDE. [Concomitant]
     Active Substance: HYDROCHLOROTHIAZIDE
  10. VIT D2 (ERGOCAL) [Concomitant]
  11. POTASSIUM [Concomitant]
     Active Substance: POTASSIUM

REACTIONS (19)
  - Cough [None]
  - Nasal congestion [None]
  - Candida infection [None]
  - Heart rate increased [None]
  - Dysphonia [None]
  - Oropharyngeal pain [None]
  - Loss of personal independence in daily activities [None]
  - Headache [None]
  - Tremor [None]
  - Dyspnoea [None]
  - Throat irritation [None]
  - Pollakiuria [None]
  - Tension headache [None]
  - Asthma [None]
  - Dry mouth [None]
  - Sinus pain [None]
  - Dizziness [None]
  - Chest discomfort [None]
  - Back pain [None]

NARRATIVE: CASE EVENT DATE: 20200326
